FAERS Safety Report 25338863 (Version 2)
Quarter: 2025Q2

REPORT INFORMATION
  Report Type: Spontaneous
  Country: US (occurrence: US)
  Receive Date: 20250520
  Receipt Date: 20250523
  Transmission Date: 20250717
  Serious: Yes (Other)
  Sender: ABBVIE
  Company Number: US-ABBVIE-6288477

PATIENT
  Age: 52 Year
  Sex: Female

DRUGS (1)
  1. CREON [Suspect]
     Active Substance: PANCRELIPASE AMYLASE\PANCRELIPASE LIPASE\PANCRELIPASE PROTEASE
     Indication: Pancreatic failure
     Route: 048
     Dates: start: 20241009

REACTIONS (6)
  - Surgery [Unknown]
  - Autoimmune disorder [Unknown]
  - Fatigue [Unknown]
  - Incorrect dose administered [Unknown]
  - Cholangitis sclerosing [Not Recovered/Not Resolved]
  - Zoonosis [Unknown]

NARRATIVE: CASE EVENT DATE: 20250101
